FAERS Safety Report 9259054 (Version 2)
Quarter: 2013Q2

REPORT INFORMATION
  Report Type: Report from Study
  Country: RS (occurrence: RS)
  Receive Date: 20130426
  Receipt Date: 20130619
  Transmission Date: 20140414
  Serious: Yes (Hospitalization)
  Sender: FDA-Public Use
  Company Number: RS-GENZYME-CAMP-1002644

PATIENT
  Age: 41 Year
  Sex: Female
  Weight: 78.4 kg

DRUGS (19)
  1. ALEMTUZUMAB [Suspect]
     Indication: MULTIPLE SCLEROSIS
     Dosage: 12 MG, QD
     Route: 042
  2. ALEMTUZUMAB [Suspect]
     Dosage: 12 MG, QD
     Route: 042
  3. METHYLPREDNISOLONE [Concomitant]
     Indication: MULTIPLE SCLEROSIS
     Dosage: 1 G, QD
     Route: 042
  4. METHYLPREDNISOLONE [Concomitant]
     Indication: MULTIPLE SCLEROSIS
     Dosage: 1 G, QD
     Route: 042
  5. RANITIDINE [Concomitant]
     Indication: PROPHYLAXIS
     Dosage: 150 MG, BID
     Route: 048
     Dates: start: 20121224
  6. INSULIN MIXTARD [Concomitant]
     Indication: DIABETES MELLITUS
     Dosage: 20 IU, QD
     Route: 058
     Dates: start: 20121227, end: 20130213
  7. INSULIN MIXTARD [Concomitant]
     Dosage: 12 IU, QD
     Route: 058
     Dates: start: 20121227, end: 20130213
  8. ACTRAPID [Concomitant]
     Indication: DIABETES MELLITUS
     Dosage: 14 IU, TID
     Route: 058
     Dates: start: 20130214, end: 20130303
  9. ACTRAPID [Concomitant]
     Indication: DIABETES MELLITUS
     Dosage: 5 IU, TID
     Route: 058
     Dates: start: 20130304
  10. INSULATARD [Concomitant]
     Indication: DIABETES MELLITUS
     Dosage: 22 IU, QD
     Route: 058
     Dates: start: 20130214, end: 20130303
  11. INSULATARD [Concomitant]
     Indication: DIABETES MELLITUS
     Dosage: 10 IU, QD
     Route: 058
     Dates: start: 20130304
  12. GLUFORMIN [Concomitant]
     Indication: DIABETES MELLITUS
     Dosage: 1000 MG, BID
     Route: 048
     Dates: start: 20130214
  13. CIPROCINAL [Concomitant]
     Indication: ANTI-INFECTIVE THERAPY
     Dosage: 500 MG, BID
     Route: 048
     Dates: start: 20130209, end: 20130218
  14. PROBIOTIC (UNSPECIFIED) [Concomitant]
     Indication: PROBIOTIC THERAPY
     Dosage: 5000000 OTHER, QD
     Route: 048
     Dates: start: 20130209, end: 20130218
  15. PROBIOTIC (UNSPECIFIED) [Concomitant]
     Indication: PROPHYLAXIS
  16. ALPHAPRESS [Concomitant]
     Indication: PRODUCT USED FOR UNKNOWN INDICATION
     Dosage: 2 MG, QD
     Route: 048
     Dates: start: 20130304, end: 20130307
  17. PANKLAV [Concomitant]
     Indication: ANTI-INFECTIVE THERAPY
     Dosage: 625 MG, TID
     Route: 048
     Dates: start: 20130313, end: 20130322
  18. VITAMIN B1, B12 [Concomitant]
     Indication: PRODUCT USED FOR UNKNOWN INDICATION
     Dosage: 250 MG, QD
     Route: 030
     Dates: start: 20130328, end: 20130406
  19. LORAZEPAM [Concomitant]
     Indication: PRODUCT USED FOR UNKNOWN INDICATION
     Dosage: 2.5 MG, QD
     Route: 048
     Dates: start: 20130328

REACTIONS (1)
  - Idiopathic thrombocytopenic purpura [Not Recovered/Not Resolved]
